FAERS Safety Report 6382630-3 (Version None)
Quarter: 2009Q3

REPORT INFORMATION
  Report Type: 
  Country: None (occurrence: None)
  Receive Date: 20090930
  Receipt Date: 20090916
  Transmission Date: 20100115
  Serious: No
  Sender: FDA-Public Use
  Company Number: NL-MYLANLABS-2009S1016432

PATIENT
  Age: 2 Day
  Sex: Male
  Weight: 3.1 kg

DRUGS (5)
  1. FENTANYL [Suspect]
     Route: 042
  2. FENTANYL [Suspect]
     Route: 042
  3. MORPHINE [Suspect]
     Route: 042
  4. THIOPENTAL SODIUM [Concomitant]
  5. CISATRACURIUM [Concomitant]

REACTIONS (3)
  - LARYNGOSPASM [None]
  - MUSCLE RIGIDITY [None]
  - RESPIRATORY DEPRESSION [None]
